FAERS Safety Report 10235700 (Version 4)
Quarter: 2014Q3

REPORT INFORMATION
  Report Type: Spontaneous
  Country: US (occurrence: US)
  Receive Date: 20140613
  Receipt Date: 20140711
  Transmission Date: 20150326
  Serious: Yes (Other)
  Sender: FDA-Public Use
  Company Number: US-BAYER-2014-088769

PATIENT
  Age: 16 Year
  Sex: Female

DRUGS (1)
  1. GADAVIST [Suspect]
     Active Substance: GADOBUTROL
     Route: 042

REACTIONS (6)
  - Eye swelling [None]
  - Throat irritation [None]
  - Eyelid oedema [None]
  - Face oedema [None]
  - Nasal congestion [None]
  - Vomiting [None]

NARRATIVE: CASE EVENT DATE: 20140606
